FAERS Safety Report 12525925 (Version 1)
Quarter: 2016Q3

REPORT INFORMATION
  Report Type: Spontaneous
  Country: CZ (occurrence: CZ)
  Receive Date: 20160705
  Receipt Date: 20160705
  Transmission Date: 20161109
  Serious: Yes (Hospitalization)
  Sender: FDA-Public Use
  Company Number: CZ-ACCORD-042115

PATIENT
  Age: 11 Year
  Sex: Female

DRUGS (3)
  1. CYTARABINE. [Suspect]
     Active Substance: CYTARABINE
     Indication: ACUTE MYELOID LEUKAEMIA
     Dosage: INITIALLY RECEIVED DOSE 40 MG/M2 TRANSFUSION THEN RECEIVED AS ADXE REGIMEN AS INDUCTION THERAPY
     Route: 042
  2. ETOPOSIDE. [Suspect]
     Active Substance: ETOPOSIDE
     Indication: ACUTE MYELOID LEUKAEMIA
     Dosage: RECEIVED AS ADXE REGIMEN AS INDUCTION THERAPY
  3. DAUNOXOME [Suspect]
     Active Substance: DAUNORUBICIN CITRATE
     Indication: ACUTE MYELOID LEUKAEMIA
     Dosage: RECEIVED AS ADXE REGIMEN AS INDUCTION THERAPY

REACTIONS (5)
  - Tumour lysis syndrome [Recovered/Resolved]
  - Compartment syndrome [Recovered/Resolved]
  - Renal failure [Recovered/Resolved]
  - Drug ineffective [Unknown]
  - Sepsis [Recovered/Resolved]
